FAERS Safety Report 15278685 (Version 1)
Quarter: 2018Q3

REPORT INFORMATION
  Report Type: Spontaneous
  Country: PL (occurrence: PL)
  Receive Date: 20180815
  Receipt Date: 20180815
  Transmission Date: 20181010
  Serious: Yes (Other)
  Sender: FDA-Public Use
  Company Number: PL-REGENERON PHARMACEUTICALS, INC.-2018-24736

PATIENT

DRUGS (3)
  1. TOBREX [Concomitant]
     Active Substance: TOBRAMYCIN
     Indication: PRODUCT USED FOR UNKNOWN INDICATION
  2. EYLEA [Suspect]
     Active Substance: AFLIBERCEPT
     Indication: PRODUCT USED FOR UNKNOWN INDICATION
     Dosage: UNK, TOTAL OF 3 INTRAVITREAL INJECTIONS WITHIN LAST 6 MONTHS, MOST RECENT DOSE ON 19?APR?2018
     Route: 031
  3. OCTENISEPT                         /00972101/ [Concomitant]
     Indication: PRODUCT USED FOR UNKNOWN INDICATION

REACTIONS (3)
  - Eye infection staphylococcal [Recovered/Resolved]
  - Multiple use of single-use product [Unknown]
  - Blindness transient [Unknown]

NARRATIVE: CASE EVENT DATE: 20180423
